FAERS Safety Report 22743221 (Version 3)
Quarter: 2025Q3

REPORT INFORMATION
  Report Type: Report from Study
  Country: BR (occurrence: BR)
  Receive Date: 20230724
  Receipt Date: 20250714
  Transmission Date: 20251021
  Serious: Yes (Hospitalization, Other)
  Sender: TAKEDA
  Company Number: BR-TAKEDA-2023TUS069241

PATIENT
  Sex: Male

DRUGS (1)
  1. VEDOLIZUMAB [Suspect]
     Active Substance: VEDOLIZUMAB
     Indication: Crohn^s disease

REACTIONS (7)
  - Crohn^s disease [Unknown]
  - Constipation [Unknown]
  - Abdominal distension [Unknown]
  - Musculoskeletal discomfort [Unknown]
  - Illness [Unknown]
  - Product availability issue [Unknown]
  - Inappropriate schedule of product administration [Unknown]
